FAERS Safety Report 10060107 (Version 2)
Quarter: 2014Q2

REPORT INFORMATION
  Report Type: Spontaneous
  Country: US (occurrence: US)
  Receive Date: 20140404
  Receipt Date: 20140417
  Transmission Date: 20141212
  Serious: Yes (Death)
  Sender: FDA-Public Use
  Company Number: US-ACTELION-A-US2014-96753

PATIENT
  Age: 21 Year
  Sex: Female

DRUGS (6)
  1. OPSUMIT [Suspect]
     Indication: PULMONARY ARTERIAL HYPERTENSION
     Dosage: UNK
     Route: 048
     Dates: start: 20140120
  2. REMODULIN [Concomitant]
  3. REVATIO [Concomitant]
  4. ADCIRCA [Concomitant]
  5. COUMADIN [Concomitant]
  6. LASIX [Concomitant]

REACTIONS (3)
  - Device related infection [Fatal]
  - Sepsis [Fatal]
  - Thrombosis in device [Fatal]
